FAERS Safety Report 10260287 (Version 1)
Quarter: 2014Q2

REPORT INFORMATION
  Report Type: Spontaneous
  Country: US (occurrence: US)
  Receive Date: 20140625
  Receipt Date: 20140625
  Transmission Date: 20141212
  Serious: No
  Sender: FDA-Public Use
  Company Number: US-SA-2014SA053776

PATIENT
  Age: 57 Year
  Sex: Female

DRUGS (3)
  1. AUBAGIO [Suspect]
     Indication: MULTIPLE SCLEROSIS
     Route: 048
     Dates: start: 201403
  2. LITHIUM [Concomitant]
  3. PROZAC [Concomitant]

REACTIONS (3)
  - Flushing [Unknown]
  - Hot flush [Unknown]
  - Abdominal discomfort [Unknown]
